FAERS Safety Report 20859902 (Version 1)
Quarter: 2022Q2

REPORT INFORMATION
  Report Type: Other
  Country: US (occurrence: None)
  Receive Date: 20220523
  Receipt Date: 20220523
  Transmission Date: 20220721
  Serious: Yes (Other)
  Sender: FDA-Public Use
  Company Number: US-ROCHE-3101719

PATIENT
  Sex: Male

DRUGS (14)
  1. ERIVEDGE [Suspect]
     Active Substance: VISMODEGIB
     Indication: Basal cell carcinoma
     Dosage: YES
     Route: 048
     Dates: start: 201802
  2. ERIVEDGE [Suspect]
     Active Substance: VISMODEGIB
     Indication: Basal cell carcinoma
  3. ERIVEDGE [Suspect]
     Active Substance: VISMODEGIB
     Indication: Basal cell carcinoma
  4. AVASTIN [Suspect]
     Active Substance: BEVACIZUMAB
     Indication: Product used for unknown indication
     Route: 050
  5. AFLIBERCEPT [Concomitant]
     Active Substance: AFLIBERCEPT
     Dosage: 2 MG INTRAVITREAL ONCE
  6. CYCLOBENZAPRINE [Concomitant]
     Active Substance: CYCLOBENZAPRINE
     Dosage: 5 MG ORALLY THREE TIMES PER DAY AS NEEDED FOR MUSCLE SPASM
  7. DOXYCYCLINE HYCLATE [Concomitant]
     Active Substance: DOXYCYCLINE HYCLATE
     Dosage: 100 MG ORALLY TWO TIMES PER DAY.?TAKE ONE TABLET TWICE DAILY FOR 7 DAYS. DO NOT EAT DAIRY WHILE TAKI
  8. LOSARTAN AND HYDROCHLOROTHIAZIDE [Concomitant]
     Active Substance: HYDROCHLOROTHIAZIDE\LOSARTAN POTASSIUM
     Dosage: TAKE 1 TABLET ORALLY DAILY
  9. LUTEIN [Concomitant]
     Active Substance: LUTEIN
     Dosage: 20 MG ORALLY DAILY
  10. MUPIROCIN [Concomitant]
     Active Substance: MUPIROCIN
     Dosage: 1 APPLY TOPICALLY TWO TIMES PER DAY.?APPLY TO BIOPSY SITE AT LEFT EAR LOCATION TWICE DAILY, COVER WI
  11. OMEPRAZOLE [Concomitant]
     Active Substance: OMEPRAZOLE
     Dosage: 20 MG ORALLY DAILY
  12. POTASSIUM CHLORIDE EXTENDED RELEASE [Concomitant]
     Active Substance: POTASSIUM CHLORIDE
     Dosage: 10 MG ORALLY DAILY.
  13. FLOMAX [Concomitant]
     Active Substance: TAMSULOSIN HYDROCHLORIDE
     Dosage: 0.4 MG ORALLY DAILY. TAKE 1 CAP DAILY.
  14. HERBALS\TURMERIC [Concomitant]
     Active Substance: HERBALS\TURMERIC
     Dosage: 400 MG ORALLY

REACTIONS (2)
  - Recurrent cancer [Unknown]
  - Off label use [Unknown]
